FAERS Safety Report 25050980 (Version 1)
Quarter: 2025Q1

REPORT INFORMATION
  Report Type: Spontaneous
  Country: CN (occurrence: CN)
  Receive Date: 20250307
  Receipt Date: 20250307
  Transmission Date: 20250409
  Serious: Yes (Hospitalization)
  Sender: PURDUE
  Company Number: CN-NAPPMUNDI-GBR-2025-0123929

PATIENT
  Age: 77 Year
  Sex: Female
  Weight: 58 kg

DRUGS (1)
  1. OXYCODONE HYDROCHLORIDE [Suspect]
     Active Substance: OXYCODONE HYDROCHLORIDE
     Indication: Analgesic therapy
     Dosage: 10 MILLIGRAM, TID
     Route: 048
     Dates: start: 20250217, end: 20250219

REACTIONS (6)
  - Nausea [Recovering/Resolving]
  - Vomiting [Recovered/Resolved]
  - Faeces hard [Recovering/Resolving]
  - Decreased appetite [Recovering/Resolving]
  - Blood calcium decreased [Unknown]
  - Inappropriate schedule of product administration [Unknown]

NARRATIVE: CASE EVENT DATE: 20250201
